FAERS Safety Report 10007467 (Version 1)
Quarter: 2014Q1

REPORT INFORMATION
  Report Type: Spontaneous
  Country: US (occurrence: US)
  Receive Date: 20140313
  Receipt Date: 20140313
  Transmission Date: 20141002
  Serious: Yes (Other)
  Sender: FDA-Public Use
  Company Number: US-TEVA-468386USA

PATIENT
  Age: 16 Year
  Sex: Female

DRUGS (4)
  1. FLUOXETINE [Suspect]
     Dosage: NEARLY TEN DAYS^ WORTH
     Route: 048
  2. TOPIRAMATE [Suspect]
     Dosage: NEARLY TEN DAYS^ WORTH
     Route: 048
  3. ARIPIPRAZOLE [Suspect]
     Dosage: NEARLY TEN DAYS^ WORTH
     Route: 048
  4. BUPROPION XR [Suspect]
     Dosage: NEARLY TEN DAYS^ WORTH
     Route: 048

REACTIONS (2)
  - Convulsion [Recovered/Resolved]
  - Drug abuse [Recovered/Resolved]
